FAERS Safety Report 11114147 (Version 1)
Quarter: 2015Q2

REPORT INFORMATION
  Report Type: Spontaneous
  Country: US (occurrence: US)
  Receive Date: 20150514
  Receipt Date: 20150514
  Transmission Date: 20150821
  Serious: Yes (Death)
  Sender: FDA-Public Use
  Company Number: PHHY2015US054160

PATIENT
  Age: 62 Year
  Sex: Male

DRUGS (7)
  1. DEXAMETHASONE. [Suspect]
     Active Substance: DEXAMETHASONE
     Indication: GASTROINTESTINAL HYPOMOTILITY
     Dosage: 20 MG, QD
     Route: 065
  2. CISPLATIN. [Concomitant]
     Active Substance: CISPLATIN
     Route: 065
  3. METOCLOPRAMIDE. [Suspect]
     Active Substance: METOCLOPRAMIDE
     Indication: GASTROINTESTINAL HYPOMOTILITY
     Dosage: 10 MG, TID
     Route: 065
  4. ETOPOSIDE. [Concomitant]
     Active Substance: ETOPOSIDE
     Indication: CHEMOTHERAPY
     Dosage: 100 MG/M2, ON DAY 1-3
     Route: 065
  5. OCTREOTIDE [Suspect]
     Active Substance: OCTREOTIDE
     Indication: GASTROINTESTINAL HYPOMOTILITY
     Dosage: 200 UG, TID
     Route: 042
  6. ETOPOSIDE. [Concomitant]
     Active Substance: ETOPOSIDE
     Route: 065
  7. CISPLATIN. [Concomitant]
     Active Substance: CISPLATIN
     Indication: CHEMOTHERAPY
     Dosage: 80 MG/M2, ON DAY 1
     Route: 065

REACTIONS (4)
  - Multi-organ failure [Fatal]
  - Product use issue [Unknown]
  - Drug ineffective [Unknown]
  - Neutropenic sepsis [Fatal]
